FAERS Safety Report 19050872 (Version 3)
Quarter: 2021Q2

REPORT INFORMATION
  Report Type: Other
  Country: DE (occurrence: DE)
  Receive Date: 20210323
  Receipt Date: 20210423
  Transmission Date: 20210717
  Serious: Yes (Hospitalization)
  Sender: FDA-Public Use
  Company Number: DE-CELLTRION INC.-2021DE003792

PATIENT

DRUGS (4)
  1. PERTUZUMAB. [Suspect]
     Active Substance: PERTUZUMAB
     Indication: BREAST CANCER
     Dosage: DATE OF LAST APPLICATION PRIOR EVENT: 15/OCT/2020; ONGOING
     Route: 065
     Dates: start: 20200803
  2. TRASTUZUMAB (UNKNOWN) [Suspect]
     Active Substance: TRASTUZUMAB
     Indication: BREAST CANCER
     Dosage: ONGOING; DATE OF LAST APPLICATION PRIOR EVENT: 15/OCT/2020
     Route: 065
     Dates: start: 20200803
  3. NAB?PACLITAXEL [Suspect]
     Active Substance: PACLITAXEL
     Indication: BREAST CANCER
     Dosage: DATE OF LAST APPLICATION PRIOR EVENT: 15/OCT/2020; ONGOING
     Route: 065
     Dates: start: 20200803
  4. CARBOPLATIN. [Suspect]
     Active Substance: CARBOPLATIN
     Indication: BREAST CANCER
     Dosage: DATE OF LAST APPLICATION PRIOR EVENT: 15/OCT/2020; ONGOING
     Route: 065
     Dates: start: 20200803

REACTIONS (3)
  - Oropharyngeal candidiasis [Unknown]
  - Off label use [Unknown]
  - Cystitis [Not Recovered/Not Resolved]

NARRATIVE: CASE EVENT DATE: 20201015
